FAERS Safety Report 9676687 (Version 4)
Quarter: 2013Q4

REPORT INFORMATION
  Report Type: Spontaneous
  Country: US (occurrence: US)
  Receive Date: 20131107
  Receipt Date: 20131224
  Transmission Date: 20140711
  Serious: Yes (Hospitalization)
  Sender: FDA-Public Use
  Company Number: US-SA-2013SA114219

PATIENT
  Age: 59 Year
  Sex: Male
  Weight: 83.91 kg

DRUGS (10)
  1. LANTUS [Suspect]
     Indication: DIABETES MELLITUS
     Dosage: DOSE:30 UNIT(S)
     Route: 065
  2. METFORMIN [Suspect]
     Indication: DIABETES MELLITUS
     Route: 065
  3. NEURONTIN [Suspect]
     Indication: NEUROPATHY PERIPHERAL
     Route: 065
     Dates: start: 1995
  4. ACCUPRIL [Suspect]
     Indication: HYPERTENSION
     Route: 065
     Dates: start: 1989
  5. PRAVASTATIN [Concomitant]
     Indication: BLOOD CHOLESTEROL INCREASED
     Route: 065
     Dates: start: 2012
  6. WARFARIN SODIUM [Concomitant]
     Indication: THROMBOSIS PROPHYLAXIS
     Dosage: 6MG ON MONDAY AND 4MG DAILY FOR REST OF THE WEEK AS A BLOOD THINNER
     Route: 065
     Dates: start: 2011
  7. CITALOPRAM [Concomitant]
     Indication: DEPRESSION
     Route: 065
     Dates: start: 2012
  8. ALL OTHER THERAPEUTIC PRODUCTS [Concomitant]
     Route: 065
  9. FOLIC ACID [Concomitant]
     Route: 065
  10. NEXIUM [Concomitant]
     Route: 065

REACTIONS (3)
  - Cerebrovascular accident [Recovered/Resolved]
  - Diabetes mellitus inadequate control [Unknown]
  - Drug dose omission [Unknown]
